FAERS Safety Report 19753622 (Version 3)
Quarter: 2021Q4

REPORT INFORMATION
  Report Type: Report from Study
  Country: CA (occurrence: CA)
  Receive Date: 20210826
  Receipt Date: 20211004
  Transmission Date: 20220303
  Serious: Yes (Other)
  Sender: FDA-Public Use
  Company Number: CA-BAYER-2021-154657

PATIENT

DRUGS (2)
  1. EYLEA [Suspect]
     Active Substance: AFLIBERCEPT
     Indication: Retinal vein occlusion
     Dosage: 2 MG
     Dates: start: 20210518, end: 20210518
  2. ADALIMUMAB [Concomitant]
     Active Substance: ADALIMUMAB
     Indication: Product used for unknown indication
     Dosage: UNK

REACTIONS (6)
  - Lyme disease [Unknown]
  - Eye haematoma [Unknown]
  - Ankylosing spondylitis [Not Recovered/Not Resolved]
  - Uveitis [Not Recovered/Not Resolved]
  - Eye disorder [Recovering/Resolving]
  - Arthropod bite [Unknown]
